FAERS Safety Report 18738585 (Version 1)
Quarter: 2021Q1

REPORT INFORMATION
  Report Type: Spontaneous
  Country: SE (occurrence: SE)
  Receive Date: 20210114
  Receipt Date: 20210114
  Transmission Date: 20210419
  Serious: Yes (Death, Hospitalization)
  Sender: FDA-Public Use
  Company Number: SE-TEVA-2021-SE-1868292

PATIENT
  Age: 69 Year
  Sex: Male
  Weight: 85 kg

DRUGS (3)
  1. FLUOROURACIL TEVA [Suspect]
     Active Substance: FLUOROURACIL
     Indication: RECTAL CANCER
     Dosage: BOLUS DOSE
     Route: 042
     Dates: start: 20201214, end: 20201214
  2. CALCIUMFOLINAT [Suspect]
     Active Substance: LEUCOVORIN CALCIUM
     Indication: RECTAL CANCER
     Dosage: BOLUS DOSE
     Route: 042
     Dates: start: 20201214, end: 20201214
  3. FLUOROURACIL TEVA [Suspect]
     Active Substance: FLUOROURACIL
     Dosage: DOSE GIVEN DURING 48H
     Route: 042
     Dates: start: 20201214, end: 20201216

REACTIONS (6)
  - Mucosal inflammation [Fatal]
  - Rectal cancer [Fatal]
  - Sepsis [Fatal]
  - Intestinal perforation [Fatal]
  - Leukopenia [Fatal]
  - Thrombocytopenia [Fatal]

NARRATIVE: CASE EVENT DATE: 20201221
